FAERS Safety Report 5946512-0 (Version None)
Quarter: 2008Q4

REPORT INFORMATION
  Report Type: 
  Country: None (occurrence: None)
  Receive Date: 20081110
  Receipt Date: 20081031
  Transmission Date: 20090506
  Serious: Yes (Life-Threatening)
  Sender: FDA-Public Use
  Company Number: B0543385A

PATIENT
  Age: 75 Year
  Sex: Female

DRUGS (3)
  1. ZANTAC [Suspect]
     Indication: PREMEDICATION
     Dosage: 50MG PER DAY
     Dates: start: 20081009, end: 20081009
  2. RESTAMIN [Concomitant]
     Route: 048
  3. CELESTONE [Concomitant]
     Indication: PREMEDICATION
     Route: 042
     Dates: start: 20081009, end: 20081009

REACTIONS (6)
  - ABDOMINAL DISCOMFORT [None]
  - ALTERED STATE OF CONSCIOUSNESS [None]
  - BLOOD PRESSURE DECREASED [None]
  - INTERSTITIAL LUNG DISEASE [None]
  - SHOCK [None]
  - TACHYCARDIA [None]
